FAERS Safety Report 22111607 (Version 2)
Quarter: 2023Q1

REPORT INFORMATION
  Report Type: Spontaneous
  Country: ES (occurrence: ES)
  Receive Date: 20230318
  Receipt Date: 20230330
  Transmission Date: 20230417
  Serious: Yes (Life-Threatening, Hospitalization, Other)
  Sender: FDA-Public Use
  Company Number: ES-MACLEODS PHARMA EU LTD-MAC2023040297

PATIENT

DRUGS (1)
  1. LEVOFLOXACIN [Suspect]
     Active Substance: LEVOFLOXACIN
     Indication: Respiratory tract infection
     Dosage: UNK
     Route: 065

REACTIONS (4)
  - Myasthenia gravis crisis [Recovering/Resolving]
  - Respiratory failure [Recovering/Resolving]
  - Pneumonia aspiration [Recovering/Resolving]
  - Dysphagia [Unknown]
